FAERS Safety Report 14150512 (Version 5)
Quarter: 2020Q4

REPORT INFORMATION
  Report Type: Report from Study
  Country: FR (occurrence: FR)
  Receive Date: 20171101
  Receipt Date: 20201223
  Transmission Date: 20210113
  Serious: Yes (Life-Threatening, Hospitalization, Disabling, Other)
  Sender: FDA-Public Use
  Company Number: FR-JAZZ-2017-FR-012141

PATIENT

DRUGS (22)
  1. ONDANSETRON [Concomitant]
     Active Substance: ONDANSETRON
     Indication: PRODUCT USED FOR UNKNOWN INDICATION
     Dosage: 4MG, BID/AS NEEDED
     Route: 041
  2. CEFTAZIDIME. [Concomitant]
     Active Substance: CEFTAZIDIME
     Indication: PRODUCT USED FOR UNKNOWN INDICATION
     Dosage: 700 MG, TID
     Route: 042
  3. ACICLOVIR [Concomitant]
     Active Substance: ACYCLOVIR
     Indication: PRODUCT USED FOR UNKNOWN INDICATION
     Dosage: 300MG, QID
     Route: 048
  4. LANSOPRAZOLE. [Concomitant]
     Active Substance: LANSOPRAZOLE
     Indication: PRODUCT USED FOR UNKNOWN INDICATION
     Dosage: 7.5 MG, QD
     Route: 048
  5. DEFITELIO [Suspect]
     Active Substance: DEFIBROTIDE SODIUM
     Dosage: 24 MG/KG, QD
     Dates: start: 20170717, end: 20170813
  6. CALCIUM GLUCONATE. [Concomitant]
     Active Substance: CALCIUM GLUCONATE
     Indication: PRODUCT USED FOR UNKNOWN INDICATION
     Dosage: POLYIONIQUE G5 + 1 G/L CALCIUM GLUCONATE 1300 ML/24 HRS
  7. BACTRIM [Concomitant]
     Active Substance: SULFAMETHOXAZOLE\TRIMETHOPRIM
     Indication: PRODUCT USED FOR UNKNOWN INDICATION
     Dosage: 300MG
  8. DEFITELIO [Suspect]
     Active Substance: DEFIBROTIDE SODIUM
     Indication: PROPHYLAXIS
     Dosage: 25 MG/KG, QD
     Dates: start: 20170717, end: 2017
  9. SOLU-MEDROL [Concomitant]
     Active Substance: METHYLPREDNISOLONE SODIUM SUCCINATE
     Dosage: 8 MG
     Dates: start: 20170903
  10. PHENOXYMETHYLPENICILLIN [Concomitant]
     Active Substance: PENICILLIN V
     Indication: PRODUCT USED FOR UNKNOWN INDICATION
     Dosage: 350000 IU, BID
  11. NICARDIPINE [Concomitant]
     Active Substance: NICARDIPINE
     Indication: PRODUCT USED FOR UNKNOWN INDICATION
     Dosage: 15 MG, TID
     Route: 048
  12. MAGNESIUM CARBONATE [Concomitant]
     Active Substance: MAGNESIUM CARBONATE
     Indication: PRODUCT USED FOR UNKNOWN INDICATION
     Dosage: 1 AMPOULE, TID
  13. POLYIONIQUE G5 [Concomitant]
     Active Substance: DEXTROSE\POTASSIUM CHLORIDE\SODIUM CHLORIDE
     Indication: PRODUCT USED FOR UNKNOWN INDICATION
     Dosage: POLYIONIQUE G5 + 1 G/L CALCIUM GLUCONATE 1300 ML/24 HRS
     Route: 041
  14. METOPIMAZINE [Concomitant]
     Active Substance: METOPIMAZINE
     Indication: PRODUCT USED FOR UNKNOWN INDICATION
     Dosage: 10MG, QD
     Route: 041
  15. URSOFALK [Concomitant]
     Active Substance: URSODIOL
     Indication: PRODUCT USED FOR UNKNOWN INDICATION
     Dosage: 100MG, BID
  16. RAMIPRIL. [Concomitant]
     Active Substance: RAMIPRIL
     Indication: PRODUCT USED FOR UNKNOWN INDICATION
     Dosage: .625 MG, QD IN THE EVENING
  17. FLUCONAZOLE. [Concomitant]
     Active Substance: FLUCONAZOLE
     Indication: PRODUCT USED FOR UNKNOWN INDICATION
     Dosage: 75MG, QD
     Route: 048
  18. CICLOSPORIN [Concomitant]
     Active Substance: CYCLOSPORINE
     Indication: PRODUCT USED FOR UNKNOWN INDICATION
     Dosage: 30 MG, BID
  19. PARACETAMOL [Concomitant]
     Active Substance: ACETAMINOPHEN
     Indication: PRODUCT USED FOR UNKNOWN INDICATION
     Dosage: 200MG, QID
  20. SOLU-MEDROL [Concomitant]
     Active Substance: METHYLPREDNISOLONE SODIUM SUCCINATE
     Indication: PRODUCT USED FOR UNKNOWN INDICATION
     Dosage: 10 MG, BID
     Dates: end: 20170902
  21. DEXCHLORPHENIRAMINE [Concomitant]
     Active Substance: DEXCHLORPHENIRAMINE
     Indication: PRODUCT USED FOR UNKNOWN INDICATION
     Dosage: 1/4 AMP TID
     Route: 041
  22. METRONIDAZOLE. [Concomitant]
     Active Substance: METRONIDAZOLE
     Indication: PRODUCT USED FOR UNKNOWN INDICATION
     Dosage: 100 MG, QID
     Route: 048

REACTIONS (5)
  - Sepsis [Not Recovered/Not Resolved]
  - Gastritis [Unknown]
  - Clostridium difficile infection [Recovered/Resolved]
  - Heart rate increased [Unknown]
  - Colitis ulcerative [Recovered/Resolved]

NARRATIVE: CASE EVENT DATE: 20170801
